FAERS Safety Report 13659326 (Version 1)
Quarter: 2017Q2

REPORT INFORMATION
  Report Type: Spontaneous
  Country: DE (occurrence: DE)
  Receive Date: 20170616
  Receipt Date: 20170616
  Transmission Date: 20170830
  Serious: Yes (Hospitalization, Other)
  Sender: FDA-Public Use
  Company Number: DE-AUROBINDO-AUR-APL-2017-35721

PATIENT
  Age: 50 Year
  Sex: Male
  Weight: 93 kg

DRUGS (1)
  1. QUETIAPINE FILM-COATED TABLET [Suspect]
     Active Substance: QUETIAPINE
     Indication: DEPRESSION
     Dosage: 100 MG, ONCE A DAY
     Route: 048
     Dates: start: 20170215

REACTIONS (4)
  - Syncope [Unknown]
  - Dyspnoea [Unknown]
  - Pulmonary embolism [Unknown]
  - Chest pain [Unknown]

NARRATIVE: CASE EVENT DATE: 2017
